FAERS Safety Report 9330265 (Version 2)
Quarter: 2013Q3

REPORT INFORMATION
  Report Type: Report from Study
  Country: CA (occurrence: CA)
  Receive Date: 20130605
  Receipt Date: 20130724
  Transmission Date: 20140515
  Serious: Yes (Other)
  Sender: FDA-Public Use
  Company Number: CA-ROCHE-1230710

PATIENT
  Sex: Female
  Weight: 74.8 kg

DRUGS (13)
  1. RITUXAN [Suspect]
     Indication: MICROSCOPIC POLYANGIITIS
     Route: 042
     Dates: start: 20121128
  2. RITUXAN [Suspect]
     Indication: OFF LABEL USE
  3. PREDNISONE [Concomitant]
  4. FERROUS SULFATE [Concomitant]
  5. SYNTHROID [Concomitant]
  6. LOSEC (CANADA) [Concomitant]
  7. NORVASC [Concomitant]
  8. FOSAVANCE [Concomitant]
  9. LORAZEPAM [Concomitant]
  10. DIPHENHYDRAMINE HCL [Concomitant]
     Route: 048
     Dates: start: 20121128
  11. ACETAMINOPHEN [Concomitant]
     Route: 048
     Dates: start: 20121128
  12. METHYLPREDNISOLONE [Concomitant]
     Route: 042
     Dates: start: 20121128
  13. METHYLPREDNISOLONE [Concomitant]
     Route: 042
     Dates: start: 20121212

REACTIONS (4)
  - Renal disorder [Not Recovered/Not Resolved]
  - Blood urine present [Recovering/Resolving]
  - Local swelling [Recovering/Resolving]
  - Joint swelling [Recovering/Resolving]
